FAERS Safety Report 16299352 (Version 3)
Quarter: 2019Q2

REPORT INFORMATION
  Report Type: Report from Study
  Country: None (occurrence: CA)
  Receive Date: 20190510
  Receipt Date: 20190604
  Transmission Date: 20190711
  Serious: Yes (Hospitalization, Other)
  Sender: FDA-Public Use
  Company Number: CA-ABBVIE-19S-028-2777599-00

PATIENT
  Age: 48 Year
  Sex: Female

DRUGS (5)
  1. NAPROXEN. [Concomitant]
     Active Substance: NAPROXEN
     Indication: PRODUCT USED FOR UNKNOWN INDICATION
  2. NORLUTATE [Suspect]
     Active Substance: NORETHINDRONE ACETATE
     Indication: PAIN
     Route: 065
     Dates: start: 201904
  3. TYLENOL [Concomitant]
     Active Substance: ACETAMINOPHEN
     Indication: PRODUCT USED FOR UNKNOWN INDICATION
  4. HYDROMORPHINE [Concomitant]
     Active Substance: HYDROMORPHONE
     Indication: PRODUCT USED FOR UNKNOWN INDICATION
  5. LUPRON DEPOT [Suspect]
     Active Substance: LEUPROLIDE ACETATE
     Indication: ENDOMETRIOSIS
     Route: 030
     Dates: start: 20190404

REACTIONS (16)
  - Abdominal adhesions [Unknown]
  - Drug ineffective [Unknown]
  - Pyrexia [Recovering/Resolving]
  - Oophoritis [Unknown]
  - Adverse drug reaction [Unknown]
  - Endometriosis [Unknown]
  - Infected cyst [Unknown]
  - Injection site pain [Unknown]
  - Laparotomy [Unknown]
  - Salpingo-oophorectomy bilateral [Unknown]
  - Pain [Recovering/Resolving]
  - Pelvic adhesions [Unknown]
  - Salpingitis [Unknown]
  - Artificial menopause [Unknown]
  - Tubo-ovarian abscess [Unknown]
  - Adnexa uteri mass [Unknown]

NARRATIVE: CASE EVENT DATE: 2019
